FAERS Safety Report 6607989-0 (Version None)
Quarter: 2010Q1

REPORT INFORMATION
  Report Type: 
  Country: None (occurrence: None)
  Receive Date: 20100226
  Receipt Date: 20100226
  Transmission Date: 20100710
  Serious: Yes (Life-Threatening, Hospitalization)
  Sender: FDA-Public Use
  Company Number: None

PATIENT
  Age: 43 Year
  Sex: Male
  Weight: 90 kg

DRUGS (2)
  1. IBUPROFEN [Suspect]
     Indication: PAIN
     Dosage: 600 MG PRN PO
     Route: 048
     Dates: start: 20040317, end: 20091009
  2. ASPIRIN [Suspect]
     Indication: SURGERY
     Dosage: 81 MG EVERY DAY PO
     Route: 048
     Dates: start: 20090901, end: 20091009

REACTIONS (8)
  - ASTHENIA [None]
  - DIARRHOEA [None]
  - DIZZINESS [None]
  - DUODENAL ULCER [None]
  - DUODENITIS [None]
  - GASTRIC HAEMORRHAGE [None]
  - GASTRITIS [None]
  - HAEMATOCRIT DECREASED [None]
